FAERS Safety Report 5200919-8 (Version None)
Quarter: 2007Q1

REPORT INFORMATION
  Report Type: 
  Country: None (occurrence: None)
  Receive Date: 20070108
  Receipt Date: 20061222
  Transmission Date: 20070707
  Serious: Yes (Hospitalization)
  Sender: FDA-Public Use
  Company Number: GB-PFIZER INC-2007000961

PATIENT
  Sex: Female

DRUGS (2)
  1. PREGABALIN [Suspect]
     Indication: NEUROPATHY PERIPHERAL
  2. FLECAINIDE ACETATE [Concomitant]

REACTIONS (2)
  - FALL [None]
  - VENTRICULAR TACHYCARDIA [None]
